FAERS Safety Report 4294108-1 (Version None)
Quarter: 2004Q1

REPORT INFORMATION
  Report Type: 
  Country: None (occurrence: None)
  Receive Date: 20040211
  Receipt Date: 20040130
  Transmission Date: 20041129
  Serious: Yes (Hospitalization)
  Sender: FDA-Public Use
  Company Number: CERZ-10490

PATIENT
  Age: 54 Year
  Sex: Female
  Weight: 53 kg

DRUGS (2)
  1. CEREZYME [Suspect]
     Indication: GAUCHER'S DISEASE
     Dosage: 2400 UNITS Q2WKS; IV
     Route: 042
     Dates: start: 19970401
  2. FOSAMAX [Concomitant]

REACTIONS (2)
  - ARTHRALGIA [None]
  - FALL [None]
